FAERS Safety Report 6806896-8 (Version None)
Quarter: 2010Q2

REPORT INFORMATION
  Report Type: 
  Country: None (occurrence: None)
  Receive Date: 20100629
  Receipt Date: 20080514
  Transmission Date: 20101027
  Serious: Yes (Other)
  Sender: FDA-Public Use
  Company Number: US-PFIZER INC-2008041918

PATIENT
  Sex: Male
  Weight: 113.63 kg

DRUGS (3)
  1. TIKOSYN [Suspect]
     Indication: ATRIAL FIBRILLATION
     Dosage: EVERY DAY
  2. METOPROLOL [Concomitant]
  3. LASIX [Concomitant]

REACTIONS (1)
  - BRONCHITIS [None]
